FAERS Safety Report 25970886 (Version 1)
Quarter: 2025Q4

REPORT INFORMATION
  Report Type: Spontaneous
  Country: US (occurrence: US)
  Receive Date: 20251028
  Receipt Date: 20251028
  Transmission Date: 20260118
  Serious: No
  Sender: MERZ
  Company Number: US-Merz Pharmaceuticals GmbH-2025100000001

PATIENT

DRUGS (2)
  1. XEOMIN [Suspect]
     Active Substance: INCOBOTULINUMTOXINA
     Indication: Neuromuscular blocking therapy
     Dosage: 25 INTERNATIONAL UNIT
  2. BELOTERO BALANCE LIODCAINE [Concomitant]
     Indication: Skin cosmetic procedure

REACTIONS (2)
  - Injection site nodule [Unknown]
  - Product preparation issue [Unknown]
